FAERS Safety Report 8995104 (Version 1)
Quarter: 2013Q1

REPORT INFORMATION
  Report Type: Spontaneous
  Country: US (occurrence: US)
  Receive Date: 20130102
  Receipt Date: 20130102
  Transmission Date: 20140127
  Serious: Yes (Death, Life-Threatening, Hospitalization, Other)
  Sender: FDA-Public Use
  Company Number: US-B.I. PHARMACEUTICALS,INC./RIDGEFIELD-2012-BI-04466GD

PATIENT
  Age: 64 Year
  Sex: Female

DRUGS (3)
  1. DABIGATRAN ETEXILATE [Suspect]
     Indication: CEREBROVASCULAR ACCIDENT PROPHYLAXIS
  2. ASPIRIN [Suspect]
     Dosage: CHRONIC USE
  3. CLOPIDOGREL [Suspect]
     Dosage: CHRONIC USE

REACTIONS (10)
  - Death [Fatal]
  - Subarachnoid haemorrhage [Recovered/Resolved]
  - Haemorrhage [Recovered/Resolved]
  - Catheter site haemorrhage [Recovered/Resolved]
  - Faeces discoloured [Unknown]
  - Somnolence [Unknown]
  - Pneumonia [Unknown]
  - Sepsis [Unknown]
  - Respiratory failure [Unknown]
  - Gingival bleeding [Recovered/Resolved]
